FAERS Safety Report 12270948 (Version 1)
Quarter: 2016Q2

REPORT INFORMATION
  Report Type: Spontaneous
  Country: FR (occurrence: FR)
  Receive Date: 20160415
  Receipt Date: 20160415
  Transmission Date: 20160815
  Serious: Yes (Hospitalization)
  Sender: FDA-Public Use
  Company Number: FR-WATSON-2016-07089

PATIENT
  Age: 55 Year
  Sex: Male

DRUGS (3)
  1. TRIHEXYPHENIDYL HYDROCHLORIDE (WATSON LABORATORIES) [Interacting]
     Active Substance: TRIHEXYPHENIDYL HYDROCHLORIDE
     Indication: PARKINSON^S DISEASE
     Dosage: UNK
     Route: 065
  2. RASAGILINE (UNKNOWN) [Suspect]
     Active Substance: RASAGILINE
     Indication: PARKINSON^S DISEASE
     Dosage: UNK
     Route: 065
  3. RIVAROXABAN [Interacting]
     Active Substance: RIVAROXABAN
     Indication: VENOUS THROMBOSIS
     Dosage: 15 MG, BID
     Route: 065

REACTIONS (2)
  - Drug interaction [Recovered/Resolved]
  - Dizziness [Recovered/Resolved]
